FAERS Safety Report 8830285 (Version 2)
Quarter: 2012Q4

REPORT INFORMATION
  Report Type: 
  Country: US (occurrence: US)
  Receive Date: 20121009
  Receipt Date: 20121115
  Transmission Date: 20130627
  Serious: Yes (Other)
  Sender: FDA-Public Use
  Company Number: US-PFIZER INC-2012249314

PATIENT
  Age: 48 Year
  Sex: Male
  Weight: 108.84 kg

DRUGS (2)
  1. LIPITOR [Suspect]
     Indication: HEART ATTACK
     Dosage: 20 mg, 1x/day
     Route: 048
     Dates: start: 2010
  2. NITROSTAT [Suspect]
     Indication: HEART ATTACK
     Dosage: 0.4 mg, as needed
     Route: 048
     Dates: start: 2010

REACTIONS (1)
  - Diabetes mellitus [Not Recovered/Not Resolved]
